FAERS Safety Report 5144715-9 (Version None)
Quarter: 2006Q4

REPORT INFORMATION
  Report Type: 
  Country: None (occurrence: None)
  Receive Date: 20061031
  Receipt Date: 20061024
  Transmission Date: 20070319
  Serious: Yes (Hospitalization)
  Sender: FDA-Public Use
  Company Number: 221193

PATIENT
  Age: 25 Year
  Sex: Male
  Weight: 85 kg

DRUGS (5)
  1. ERLOTINIB ( ERLOTINIB) TABLET [Suspect]
     Indication: RECTAL CANCER
     Dosage: 100 MG, QD, ORAL
     Route: 048
     Dates: start: 20051221, end: 20060113
  2. FLUOROURACIL [Suspect]
     Indication: RECTAL CANCER
     Dosage: SEE IMAGE
     Route: 040
     Dates: start: 20051202, end: 20060104
  3. FLUOROURACIL [Suspect]
     Indication: RECTAL CANCER
     Dosage: SEE IMAGE
     Route: 040
     Dates: start: 20051221, end: 20060104
  4. CLEOCIN T GEL (CLINDAMYCIN PHOSPHATE) [Concomitant]
  5. ELIDEL [Concomitant]

REACTIONS (1)
  - SUBCUTANEOUS ABSCESS [None]
